FAERS Safety Report 18521843 (Version 2)
Quarter: 2021Q3

REPORT INFORMATION
  Report Type: Report from Study
  Country: DE (occurrence: DE)
  Receive Date: 20201119
  Receipt Date: 20210708
  Transmission Date: 20211014
  Serious: Yes (Hospitalization)
  Sender: FDA-Public Use
  Company Number: DE-ELI_LILLY_AND_COMPANY-DE202011002683

PATIENT
  Sex: Female

DRUGS (2)
  1. FORSTEO [Suspect]
     Active Substance: TERIPARATIDE
     Indication: OSTEOPOROSIS
     Dosage: UNK, DAILY
     Route: 058
     Dates: start: 20191108
  2. FORSTEO [Suspect]
     Active Substance: TERIPARATIDE
     Dosage: UNK, DAILY
     Route: 058
     Dates: end: 20210503

REACTIONS (3)
  - Nephrolithiasis [Recovering/Resolving]
  - Asthenia [Unknown]
  - Thyroid cancer [Recovered/Resolved]

NARRATIVE: CASE EVENT DATE: 202008
